FAERS Safety Report 20227707 (Version 3)
Quarter: 2022Q1

REPORT INFORMATION
  Report Type: Spontaneous
  Country: AU (occurrence: AU)
  Receive Date: 20211224
  Receipt Date: 20220118
  Transmission Date: 20220423
  Serious: Yes (Other)
  Sender: FDA-Public Use
  Company Number: AU-PFIZER INC-202101793939

PATIENT
  Age: 64 Year
  Sex: Female

DRUGS (4)
  1. METHYLPREDNISOLONE SODIUM SUCCINATE [Suspect]
     Active Substance: METHYLPREDNISOLONE SODIUM SUCCINATE
     Indication: Henoch-Schonlein purpura
     Dosage: 1 G, DAILY
     Route: 042
  2. SIROLIMUS [Suspect]
     Active Substance: SIROLIMUS
     Indication: Henoch-Schonlein purpura
     Dosage: UNK
  3. RITUXIMAB [Suspect]
     Active Substance: RITUXIMAB
     Indication: Henoch-Schonlein purpura
     Dosage: 1 G (ON DAY 0 AND DAY 14)
     Route: 042
  4. PREDNISOLONE [Suspect]
     Active Substance: PREDNISOLONE
     Indication: Henoch-Schonlein purpura
     Dosage: UNK (LOW DOSE)
     Route: 048

REACTIONS (2)
  - Adrenal insufficiency [Unknown]
  - Secondary immunodeficiency [Unknown]
